FAERS Safety Report 24253069 (Version 2)
Quarter: 2024Q3

REPORT INFORMATION
  Report Type: Report from Study
  Country: US (occurrence: US)
  Receive Date: 20240827
  Receipt Date: 20240831
  Transmission Date: 20241017
  Serious: Yes (Death, Hospitalization, Other)
  Sender: AMNEAL
  Company Number: US-AMNEAL PHARMACEUTICALS-2024-AMRX-03064

PATIENT
  Sex: Male

DRUGS (2)
  1. CARBIDOPA\LEVODOPA [Suspect]
     Active Substance: CARBIDOPA\LEVODOPA
     Indication: Product used for unknown indication
     Dosage: 48.75-195 MG, 2 CAPSULES AT 7 AM, NOON, 5 PM, 10 PM AND TAKE 1 CAPSULE AT 2AM OR 3AM
     Route: 048
  2. CARBIDOPA\LEVODOPA [Suspect]
     Active Substance: CARBIDOPA\LEVODOPA
     Dosage: 48.75-195 MG, 2-3 CAPSULES AT 7 AM, 2 CAPSULES AT NOON, 1 CAPSULE AT 4 PM, 7 PM, AND 2 CAPSULES AT 1
     Route: 048
     Dates: start: 20230911

REACTIONS (5)
  - Acute kidney injury [Fatal]
  - Acute respiratory distress syndrome [Fatal]
  - Cardio-respiratory arrest [Fatal]
  - Parkinson^s disease [Fatal]
  - Fall [Unknown]
